FAERS Safety Report 23417998 (Version 2)
Quarter: 2024Q2

REPORT INFORMATION
  Report Type: Report from Study
  Country: CA (occurrence: CA)
  Receive Date: 20240118
  Receipt Date: 20240626
  Transmission Date: 20240716
  Serious: Yes (Other)
  Sender: FDA-Public Use
  Company Number: CA-ROCHE-3140802

PATIENT
  Age: 30 Year
  Sex: Female

DRUGS (8)
  1. OCREVUS [Suspect]
     Active Substance: OCRELIZUMAB
     Indication: Relapsing-remitting multiple sclerosis
     Dosage: 300 MG AT DAY 0 AND 14, THEN 600 MG EVERY 6 MONTH
     Route: 042
     Dates: start: 20220713
  2. OCREVUS [Suspect]
     Active Substance: OCRELIZUMAB
     Route: 042
  3. OCREVUS [Suspect]
     Active Substance: OCRELIZUMAB
     Route: 042
  4. PREDNISONE [Suspect]
     Active Substance: PREDNISONE
     Indication: Product used for unknown indication
     Route: 065
  5. BILASTINE [Concomitant]
     Active Substance: BILASTINE
  6. ALESSE 28 [Concomitant]
     Active Substance: ETHINYL ESTRADIOL\LEVONORGESTREL
  7. ACETAMINOPHEN [Concomitant]
     Active Substance: ACETAMINOPHEN
  8. IBUPROFEN [Concomitant]
     Active Substance: IBUPROFEN

REACTIONS (18)
  - Cataract subcapsular [Unknown]
  - Infusion related reaction [Recovered/Resolved]
  - Painful respiration [Unknown]
  - Fibrin D dimer increased [Unknown]
  - Urinary tract infection [Not Recovered/Not Resolved]
  - Infusion related reaction [Unknown]
  - Swelling [Unknown]
  - Gastrooesophageal reflux disease [Unknown]
  - Multiple sclerosis [Unknown]
  - Axillary mass [Unknown]
  - Feeling abnormal [Recovered/Resolved]
  - Wound infection [Unknown]
  - Trichorrhexis [Unknown]
  - Vertigo [Unknown]
  - Therapeutic response shortened [Unknown]
  - Fatigue [Unknown]
  - Infection susceptibility increased [Unknown]
  - Acne [Unknown]

NARRATIVE: CASE EVENT DATE: 20220713
